FAERS Safety Report 4493811-8 (Version None)
Quarter: 2004Q4

REPORT INFORMATION
  Report Type: 
  Country: None (occurrence: None)
  Receive Date: 20041102
  Receipt Date: 20041020
  Transmission Date: 20050328
  Serious: Yes (Life-Threatening, Hospitalization)
  Sender: FDA-Public Use
  Company Number: 2004240699GB

PATIENT
  Age: 72 Year
  Sex: Male

DRUGS (20)
  1. CELEBREX [Suspect]
     Indication: RHEUMATOID ARTHRITIS
     Dosage: 100 MG, BID, ORAL
     Route: 048
     Dates: end: 20040927
  2. IRBESARTAN [Suspect]
     Indication: HYPERTENSION
     Dosage: 300 MG, QD, ORAL
     Route: 048
     Dates: end: 20040924
  3. SULFASALAZINE [Concomitant]
  4. CO-CODAMOL [Concomitant]
  5. GABAPENTIN [Concomitant]
  6. LEVOTHYROXINE SODIUM [Concomitant]
  7. ALENDRONATE SODIUM [Concomitant]
  8. SALMETEROL (SALMETEROL) [Concomitant]
  9. FLUTICASONE PROPIONATE [Concomitant]
  10. SALBUTAMOL (SALBUTAMOL) [Concomitant]
  11. ACETYLSALICYLIC ACID [Concomitant]
  12. VITAMIN D [Concomitant]
  13. CALCIUM CARBONATE [Concomitant]
  14. AMLODIPINE [Concomitant]
  15. DOXAZOSIN (DOXAZOSIN) [Concomitant]
  16. FRUSEMIDE [Concomitant]
  17. GLICLAZIDE (GLICLAZIDE) [Concomitant]
  18. CARBAMAZEPINE [Concomitant]
  19. SENNA (SENNA) [Concomitant]
  20. LACTULOSE [Concomitant]

REACTIONS (2)
  - HYPERKALAEMIA [None]
  - RENAL FAILURE ACUTE [None]
